FAERS Safety Report 15192082 (Version 2)
Quarter: 2018Q3

REPORT INFORMATION
  Report Type: Spontaneous
  Country: GB (occurrence: GB)
  Receive Date: 20180724
  Receipt Date: 20180809
  Transmission Date: 20181010
  Serious: Yes (Hospitalization)
  Sender: FDA-Public Use
  Company Number: PHHY2018GB054216

PATIENT
  Age: 2 Week
  Sex: Female
  Weight: 3.2 kg

DRUGS (1)
  1. METRONIDAZOLE. [Suspect]
     Active Substance: METRONIDAZOLE
     Indication: EXPOSURE VIA BREAST MILK
     Dosage: MATERNAL DOSE: 400 MG
     Route: 063

REACTIONS (5)
  - Irritability [Not Recovered/Not Resolved]
  - Abnormal loss of weight [Not Recovered/Not Resolved]
  - Abdominal pain upper [Not Recovered/Not Resolved]
  - Diarrhoea [Not Recovered/Not Resolved]
  - Infantile colic [Not Recovered/Not Resolved]

NARRATIVE: CASE EVENT DATE: 20180313
